FAERS Safety Report 5398867-6 (Version None)
Quarter: 2007Q3

REPORT INFORMATION
  Report Type: 
  Country: None (occurrence: None)
  Receive Date: 20070727
  Receipt Date: 20070725
  Transmission Date: 20080115
  Serious: Yes (Other)
  Sender: FDA-Public Use
  Company Number: PHNU2007DE01471

PATIENT
  Sex: Female

DRUGS (4)
  1. TARGIN [Concomitant]
  2. CONCOR COR [Concomitant]
  3. VOLTAREN [Suspect]
     Indication: KNEE ARTHROPLASTY
     Dosage: 1 DF, BID
     Route: 048
  4. VOLTAREN [Suspect]
     Dosage: 1 DF, QD
     Route: 048

REACTIONS (3)
  - BLOOD CREATININE INCREASED [None]
  - BLOOD IRON DECREASED [None]
  - KNEE ARTHROPLASTY [None]
